FAERS Safety Report 16918643 (Version 4)
Quarter: 2020Q2

REPORT INFORMATION
  Report Type: Other
  Country: ES (occurrence: ES)
  Receive Date: 20191015
  Receipt Date: 20200604
  Transmission Date: 20200713
  Serious: Yes (Life-Threatening, Hospitalization, Other)
  Sender: FDA-Public Use
  Company Number: ES-MACLEODS PHARMACEUTICALS US LTD-MAC2019023252

PATIENT

DRUGS (6)
  1. SPIRONOLACTONE. [Suspect]
     Active Substance: SPIRONOLACTONE
     Indication: HYPERTENSION
     Dosage: UNK
     Route: 048
     Dates: start: 20180405, end: 20180510
  2. AMIODARONE HYDROCHLORIDE. [Suspect]
     Active Substance: AMIODARONE HYDROCHLORIDE
     Indication: ARRHYTHMIA
     Dosage: 20 MILLIGRAM, QD
     Route: 048
     Dates: start: 20180226, end: 20180510
  3. VALSARTAN. [Suspect]
     Active Substance: VALSARTAN
     Indication: HYPERTENSION
     Dosage: 320 MILLIGRAM, QD
     Route: 048
     Dates: start: 20120101, end: 20180510
  4. BOI K [Suspect]
     Active Substance: ASCORBIC ACID\POTASSIUM BICARBONATE
     Indication: NUTRITIONAL SUPPLEMENTATION
     Dosage: UNK, EFFERVESCENT TABLETS
     Route: 048
     Dates: start: 20120101, end: 20180510
  5. TORSEMIDE. [Suspect]
     Active Substance: TORSEMIDE
     Indication: HYPERTENSION
     Dosage: UNK
     Route: 048
     Dates: start: 20130901, end: 20180510
  6. DILTIAZEM HYDROCHLORIDE. [Suspect]
     Active Substance: DILTIAZEM HYDROCHLORIDE
     Indication: HYPERTENSION
     Dosage: 60 MILLIGRAM, 12 PER HOUR
     Route: 048
     Dates: start: 20180226

REACTIONS (3)
  - Hypothyroidism [Not Recovered/Not Resolved]
  - Atrioventricular block complete [Recovered/Resolved]
  - Hyperkalaemia [Recovered/Resolved]

NARRATIVE: CASE EVENT DATE: 20180510
